FAERS Safety Report 4822398-2 (Version None)
Quarter: 2005Q4

REPORT INFORMATION
  Report Type: 
  Country: None (occurrence: None)
  Receive Date: 20051104
  Receipt Date: 20051104
  Transmission Date: 20060501
  Serious: Yes (Hospitalization, Disabling)
  Sender: FDA-Public Use
  Company Number: None

PATIENT
  Age: 28 Year
  Sex: Female
  Weight: 95.2554 kg

DRUGS (2)
  1. MOTRIN [Suspect]
     Indication: PYREXIA
     Dates: start: 20051014, end: 20051020
  2. ZITHROMAX [Suspect]
     Indication: BACTERIAL INFECTION
     Dates: start: 20051017, end: 20051020

REACTIONS (2)
  - PNEUMONIA VIRAL [None]
  - STEVENS-JOHNSON SYNDROME [None]
